FAERS Safety Report 16357414 (Version 1)
Quarter: 2019Q2

REPORT INFORMATION
  Report Type: Spontaneous
  Country: IT (occurrence: IT)
  Receive Date: 20190527
  Receipt Date: 20190527
  Transmission Date: 20190711
  Serious: Yes (Hospitalization, Other)
  Sender: FDA-Public Use
  Company Number: IT-GLAXOSMITHKLINE-IT2019093898

PATIENT
  Age: 56 Year
  Sex: Male

DRUGS (3)
  1. ANAURAN [LIDOCAINE\NEOMYCIN\POLYMYXIN B] [Suspect]
     Active Substance: LIDOCAINE\NEOMYCIN\POLYMYXIN B
     Indication: EAR INFECTION
     Dosage: UNK
     Route: 048
     Dates: start: 20190303, end: 20190303
  2. ESOPRAL [Suspect]
     Active Substance: ESOMEPRAZOLE MAGNESIUM
     Indication: DUODENAL ULCER
     Dosage: 480 MG, UNK
     Route: 048
     Dates: start: 20190303, end: 20190303
  3. VOLTFAST [Suspect]
     Active Substance: DICLOFENAC
     Indication: PAIN
     Dosage: 150 MG, UNK
     Route: 048
     Dates: start: 20190303, end: 20190303

REACTIONS (1)
  - Drug abuse [Unknown]

NARRATIVE: CASE EVENT DATE: 20190303
